FAERS Safety Report 23287988 (Version 2)
Quarter: 2024Q1

REPORT INFORMATION
  Report Type: Spontaneous
  Country: CA (occurrence: CA)
  Receive Date: 20231212
  Receipt Date: 20240201
  Transmission Date: 20240410
  Serious: Yes (Other)
  Sender: FDA-Public Use
  Company Number: CA-PFIZER INC-2021774889

PATIENT
  Age: 18 Year
  Sex: Female
  Weight: 58 kg

DRUGS (18)
  1. RUXIENCE [Suspect]
     Active Substance: RITUXIMAB-PVVR
     Indication: Myositis
     Dosage: 1000 MG (DAY 1 AND DAY 15 EVERY 6 MONTHS)
     Route: 042
  2. RUXIENCE [Suspect]
     Active Substance: RITUXIMAB-PVVR
     Dosage: 1000 MG (DAY 1 AND DAY 15)
     Route: 042
     Dates: start: 20210809
  3. RUXIENCE [Suspect]
     Active Substance: RITUXIMAB-PVVR
     Dosage: 1000 MG (DAY 1 AND DAY 15)
     Route: 042
     Dates: start: 20210809, end: 20210823
  4. RUXIENCE [Suspect]
     Active Substance: RITUXIMAB-PVVR
     Dosage: 1000 MG (DAY 1 AND DAY 15)
     Route: 042
     Dates: start: 20210823
  5. RUXIENCE [Suspect]
     Active Substance: RITUXIMAB-PVVR
     Dosage: 1 G (DAY1,DAY15 EVERY 6MONTHS)
     Route: 042
     Dates: start: 20220308, end: 20220322
  6. RUXIENCE [Suspect]
     Active Substance: RITUXIMAB-PVVR
     Dosage: 1 G (DAY 1, DAY 15 EVERY 6 MONTHS)
     Route: 042
     Dates: start: 20220322, end: 20220322
  7. RUXIENCE [Suspect]
     Active Substance: RITUXIMAB-PVVR
     Dosage: 1000 MG (DAY 1) (ON DAY 1 AND DAY 15)
     Route: 042
     Dates: start: 20230501
  8. RUXIENCE [Suspect]
     Active Substance: RITUXIMAB-PVVR
     Dosage: 1000 MG (DAY 1) (ON DAY 1 AND DAY 15)
     Route: 042
     Dates: start: 20230501, end: 20230515
  9. RUXIENCE [Suspect]
     Active Substance: RITUXIMAB-PVVR
     Dosage: 1000 MG EVERY 6 MONTHS (DAY 1 AND DAY 15)
     Route: 042
     Dates: start: 20231115
  10. RUXIENCE [Suspect]
     Active Substance: RITUXIMAB-PVVR
     Dosage: 1000 MG EVERY 6 MONTHS (DAY 1 AND DAY 15) (DOSAGE ADMINISTERED: 1000 MG, 2 WEEKS)
     Route: 042
     Dates: start: 20231129
  11. ACETAMINOPHEN [Concomitant]
     Active Substance: ACETAMINOPHEN
     Indication: Premedication
     Dosage: 650 MG
     Route: 048
  12. CALCIUM [Concomitant]
     Active Substance: CALCIUM
     Dosage: UNK
  13. ETHINYL ESTRADIOL\NORGESTREL [Concomitant]
     Active Substance: ETHINYL ESTRADIOL\NORGESTREL
     Dosage: UNK
  14. DIPHENHYDRAMINE HYDROCHLORIDE [Concomitant]
     Active Substance: DIPHENHYDRAMINE HYDROCHLORIDE
     Indication: Premedication
     Dosage: 50 MG
     Route: 048
  15. FOLIC ACID [Concomitant]
     Active Substance: FOLIC ACID
     Dosage: UNK
  16. METHOTREXATE [Concomitant]
     Active Substance: METHOTREXATE
     Dosage: 25 MG, WEEKLY
     Route: 058
     Dates: start: 202004
  17. METHYLPREDNISOLONE [Concomitant]
     Active Substance: METHYLPREDNISOLONE
     Indication: Premedication
     Dosage: 100 MG
     Route: 041
  18. ERGOCALCIFEROL [Concomitant]
     Active Substance: ERGOCALCIFEROL
     Dosage: UNK

REACTIONS (14)
  - Muscle enzyme increased [Not Recovered/Not Resolved]
  - Erythema [Recovered/Resolved]
  - Nasal congestion [Recovered/Resolved]
  - Dermatitis acneiform [Recovered/Resolved]
  - Dry mouth [Recovered/Resolved]
  - Asthenia [Unknown]
  - COVID-19 [Unknown]
  - Weight decreased [Unknown]
  - Pharyngeal paraesthesia [Recovered/Resolved]
  - Cough [Unknown]
  - Blood creatine phosphokinase increased [Unknown]
  - Off label use [Unknown]
  - Off label use [Unknown]
  - Intentional product use issue [Unknown]

NARRATIVE: CASE EVENT DATE: 20210809
